FAERS Safety Report 4935568-X (Version None)
Quarter: 2006Q1

REPORT INFORMATION
  Report Type: 
  Country: None (occurrence: None)
  Receive Date: 20060307
  Receipt Date: 20060302
  Transmission Date: 20060701
  Serious: Yes (Life-Threatening)
  Sender: FDA-Public Use
  Company Number: GR-GLAXOSMITHKLINE-B0414381A

PATIENT
  Age: 62 Year
  Sex: Female

DRUGS (1)
  1. SEROXAT [Suspect]
     Dosage: 20MG UNKNOWN
     Route: 048
     Dates: start: 20060227, end: 20060228

REACTIONS (2)
  - SUICIDAL IDEATION [None]
  - SUICIDE ATTEMPT [None]
